FAERS Safety Report 5422467-2 (Version None)
Quarter: 2007Q3

REPORT INFORMATION
  Report Type: 
  Country: None (occurrence: None)
  Receive Date: 20070820
  Receipt Date: 20070803
  Transmission Date: 20080115
  Serious: Yes (Life-Threatening, Hospitalization)
  Sender: FDA-Public Use
  Company Number: DSA_30347_2007

PATIENT
  Sex: Female

DRUGS (4)
  1. LORAZEPAM [Suspect]
     Dosage: (ORAL)
     Route: 048
     Dates: start: 20070802, end: 20070802
  2. ATOSIL /00133602/ (ATOSIL - ISOPROMETHAZINE HYDROCHLORIDE) [Suspect]
     Dosage: (ORAL)
     Route: 048
     Dates: start: 20070802, end: 20070802
  3. DIAZEPAM [Suspect]
     Dosage: (ORAL)
     Route: 048
     Dates: start: 20070802, end: 20070802
  4. TRAMAL (TRAMAL - TRAMADOL HYDROCHLORIDE) (NOT SPECIFIED) [Suspect]
     Dosage: (ORAL)
     Route: 048
     Dates: start: 20070802, end: 20070802

REACTIONS (3)
  - MULTIPLE DRUG OVERDOSE [None]
  - SUICIDE ATTEMPT [None]
  - VOMITING [None]
